FAERS Safety Report 7298665-2 (Version None)
Quarter: 2011Q1

REPORT INFORMATION
  Report Type: 
  Country: None (occurrence: None)
  Receive Date: 20110217
  Receipt Date: 20110214
  Transmission Date: 20110831
  Serious: Yes (Hospitalization, Other)
  Sender: FDA-Public Use
  Company Number: IE-JNJFOC-20101205857

PATIENT
  Sex: Female

DRUGS (3)
  1. ZYPREXA [Suspect]
     Indication: PSYCHOTIC DISORDER
     Route: 048
  2. RISPERDONE [Suspect]
     Indication: PSYCHOTIC DISORDER
     Route: 048
  3. ZYPREXA [Suspect]
     Route: 048

REACTIONS (5)
  - ISCHAEMIA [None]
  - DYSARTHRIA [None]
  - GASTROINTESTINAL DISORDER [None]
  - CEREBROVASCULAR ACCIDENT [None]
  - DYSKINESIA [None]
